FAERS Safety Report 18606802 (Version 1)
Quarter: 2020Q4

REPORT INFORMATION
  Report Type: Spontaneous
  Country: FR (occurrence: FR)
  Receive Date: 20201211
  Receipt Date: 20201211
  Transmission Date: 20210114
  Serious: Yes (Hospitalization)
  Sender: FDA-Public Use
  Company Number: FR-CELGENEUS-FRA-20201101989

PATIENT
  Age: 69 Year
  Sex: Male
  Weight: 70.8 kg

DRUGS (7)
  1. DEXAMETHASONE. [Suspect]
     Active Substance: DEXAMETHASONE
     Indication: PLASMA CELL MYELOMA
     Route: 042
     Dates: start: 20200519, end: 20200722
  2. ALPRAZOLAM. [Suspect]
     Active Substance: ALPRAZOLAM
     Indication: ANXIETY
     Dosage: .5 MILLIGRAM
     Route: 048
  3. REVLIMID [Suspect]
     Active Substance: LENALIDOMIDE
     Indication: PLASMA CELL MYELOMA
     Route: 048
     Dates: start: 20200519, end: 20200722
  4. VELCADE [Suspect]
     Active Substance: BORTEZOMIB
     Indication: PLASMA CELL MYELOMA
     Route: 042
     Dates: start: 20200519, end: 20200722
  5. NEUPOGEN [Suspect]
     Active Substance: FILGRASTIM
     Indication: TRANSPLANT
     Dosage: 48MU - 0 - 30MU
     Route: 058
     Dates: start: 20200813, end: 20200817
  6. MOZOBIL [Suspect]
     Active Substance: PLERIXAFOR
     Indication: TRANSPLANT
     Dosage: 20 MG/ML,
     Route: 058
     Dates: start: 20200816, end: 20200816
  7. KARDEGIC [Suspect]
     Active Substance: ASPIRIN DL-LYSINE
     Indication: PROPHYLAXIS
     Dosage: 75 MILLIGRAM
     Route: 048

REACTIONS (1)
  - Organising pneumonia [Recovering/Resolving]

NARRATIVE: CASE EVENT DATE: 202008
